FAERS Safety Report 10553585 (Version 2)
Quarter: 2014Q4

REPORT INFORMATION
  Report Type: Spontaneous
  Country: JP (occurrence: None)
  Receive Date: 20141028
  Receipt Date: 20141125
  Transmission Date: 20150529
  Serious: Yes (Hospitalization)
  Sender: FDA-Public Use
  Company Number: 2014045977

PATIENT
  Sex: Female

DRUGS (7)
  1. HYSRON (MEDROXYPROGRESTION ACETATE) [Concomitant]
  2. MINIRIN [Suspect]
     Active Substance: DESMOPRESSIN ACETATE
     Indication: DIABETES INSIPIDUS
     Dates: start: 20130812
  3. SOMATROPIN (SOMATROPIN) [Concomitant]
     Active Substance: SOMATROPIN
  4. CORTILL (BETAMETHASONE) [Concomitant]
  5. PREMARIN (ESTROGENS CONJUGATED) [Concomitant]
  6. DESMOPRESSIN ACETATE. [Suspect]
     Active Substance: DESMOPRESSIN ACETATE
     Indication: DIABETES INSIPIDUS
     Route: 045
  7. THYRADIN0S (LEVOTHYROXINE SODIUM) [Concomitant]

REACTIONS (4)
  - Drug effect incomplete [None]
  - Product use issue [None]
  - CNS germinoma [None]
  - Pituitary tumour [None]
